FAERS Safety Report 23363631 (Version 1)
Quarter: 2024Q1

REPORT INFORMATION
  Report Type: Spontaneous
  Country: US (occurrence: US)
  Receive Date: 20240103
  Receipt Date: 20240103
  Transmission Date: 20240409
  Serious: No
  Sender: FDA-Public Use
  Company Number: US-JNJFOC-20231273254

PATIENT
  Age: 46 Year
  Sex: Female
  Weight: 113.5 kg

DRUGS (1)
  1. SPRAVATO [Suspect]
     Active Substance: ESKETAMINE
     Indication: Major depression
     Dosage: 3 DOSES
     Dates: start: 20231220

REACTIONS (2)
  - Vomiting [Recovered/Resolved]
  - Taste disorder [Unknown]
